FAERS Safety Report 17324723 (Version 1)
Quarter: 2020Q1

REPORT INFORMATION
  Report Type: Report from Study
  Country: ES (occurrence: ES)
  Receive Date: 20200127
  Receipt Date: 20200127
  Transmission Date: 20200409
  Serious: Yes (Hospitalization)
  Sender: FDA-Public Use
  Company Number: ES-ACCORD-170740

PATIENT
  Age: 77 Year
  Sex: Female

DRUGS (6)
  1. ATORVASTATIN/ATORVASTATIN CALCIUM [Suspect]
     Active Substance: ATORVASTATIN CALCIUM
     Indication: DYSLIPIDAEMIA
     Route: 048
     Dates: start: 20111018
  2. ALDOCUMAR [Interacting]
     Active Substance: WARFARIN SODIUM
     Indication: ATRIAL FIBRILLATION
     Dosage: 1 MG TABLETS, 40 TABLETS
     Route: 048
     Dates: start: 20171103, end: 20180425
  3. CARVEDILOL/CARVEDILOL HYDROCHLODRIDE [Concomitant]
     Active Substance: CARVEDILOL HYDROCHLORIDE
     Indication: ATRIAL FIBRILLATION
     Route: 048
     Dates: start: 20121205
  4. FENTANYL. [Concomitant]
     Active Substance: FENTANYL
     Indication: NEURALGIA
     Route: 062
     Dates: start: 20180211, end: 20180425
  5. RAMIPRIL. [Concomitant]
     Active Substance: RAMIPRIL
     Indication: HYPERTENSION
     Route: 048
     Dates: start: 20131114, end: 20180425
  6. OMEPRAZOLE. [Concomitant]
     Active Substance: OMEPRAZOLE
     Indication: PROPHYLAXIS
     Route: 048
     Dates: start: 20130709

REACTIONS (2)
  - Haematuria [Recovered/Resolved]
  - Drug interaction [Unknown]

NARRATIVE: CASE EVENT DATE: 20180422
